FAERS Safety Report 4383680-9 (Version None)
Quarter: 2004Q2

REPORT INFORMATION
  Report Type: 
  Country: None (occurrence: None)
  Receive Date: 20040623
  Receipt Date: 20040612
  Transmission Date: 20050107
  Serious: Yes (Other)
  Sender: FDA-Public Use
  Company Number: ES-GLAXOSMITHKLINE-B0336310A

PATIENT
  Age: 10 Year
  Sex: Female
  Weight: 29 kg

DRUGS (1)
  1. TAGAMET [Suspect]
     Dosage: 400MG SINGLE DOSE
     Route: 065

REACTIONS (2)
  - ASTHENIA [None]
  - SYNCOPE [None]
